FAERS Safety Report 18076864 (Version 1)
Quarter: 2020Q3

REPORT INFORMATION
  Report Type: Spontaneous
  Country: JP (occurrence: JP)
  Receive Date: 20200728
  Receipt Date: 20200728
  Transmission Date: 20201103
  Serious: Yes (Death)
  Sender: FDA-Public Use
  Company Number: JP-ROCHE-2649274

PATIENT
  Age: 29 Year
  Sex: Male

DRUGS (6)
  1. CISPLATIN. [Concomitant]
     Active Substance: CISPLATIN
  2. CYTARABINE. [Concomitant]
     Active Substance: CYTARABINE
  3. BENDAMUSTINE HYDROCHLORIDE. [Concomitant]
     Active Substance: BENDAMUSTINE HYDROCHLORIDE
     Indication: B-CELL LYMPHOMA
     Route: 041
  4. SOLU?MEDRONE [Concomitant]
     Active Substance: METHYLPREDNISOLONE SODIUM SUCCINATE
  5. GAZYVA [Suspect]
     Active Substance: OBINUTUZUMAB
     Indication: B-CELL LYMPHOMA
     Route: 041
     Dates: start: 2019
  6. ETOPOSIDE. [Concomitant]
     Active Substance: ETOPOSIDE

REACTIONS (2)
  - Infusion related reaction [Unknown]
  - B-cell lymphoma [Fatal]
